FAERS Safety Report 11127806 (Version 1)
Quarter: 2015Q2

REPORT INFORMATION
  Report Type: Report from Study
  Country: CA (occurrence: CA)
  Receive Date: 20150521
  Receipt Date: 20150521
  Transmission Date: 20150821
  Serious: Yes (Other)
  Sender: FDA-Public Use
  Company Number: CA-BIOGENIDEC-2015BI068446

PATIENT
  Age: 51 Year
  Sex: Female

DRUGS (1)
  1. TECFIDERA [Suspect]
     Active Substance: DIMETHYL FUMARATE
     Indication: RELAPSING-REMITTING MULTIPLE SCLEROSIS
     Route: 048
     Dates: start: 20140602

REACTIONS (6)
  - Brain stem haemorrhage [Recovered/Resolved]
  - Intervertebral disc protrusion [Not Recovered/Not Resolved]
  - Strabismus [Not Recovered/Not Resolved]
  - Perineurial cyst [Not Recovered/Not Resolved]
  - Visual impairment [Not Recovered/Not Resolved]
  - Adrenal cyst [Not Recovered/Not Resolved]

NARRATIVE: CASE EVENT DATE: 20141202
